FAERS Safety Report 9291183 (Version 1)
Quarter: 2012Q4

REPORT INFORMATION
  Report Type: Spontaneous
  Country: GB (occurrence: None)
  Receive Date: 20121127
  Receipt Date: 20121127
  Transmission Date: 20130627
  Serious: Yes (Other)
  Sender: FDA-Public Use
  Company Number: GER/UKI/12/0026339

PATIENT
  Age: 26 Year
  Sex: Female

DRUGS (6)
  1. RISPERIDONE (RISPERIDONE) [Suspect]
     Indication: PSYCHOSIS
  2. RISPERIDONE (RISPERIDONE) [Suspect]
     Indication: PSYCHOSIS
  3. OLANZAPINE (OLANZAPINE) [Suspect]
     Indication: PSYCHOSIS
  4. QUETIAPINE (QUETIAPINE) (QUETIAPINE) [Suspect]
     Indication: DRUG USE FOR UNKNOWN INDICATION
  5. ARIPIPRAZOLE (ARIPIPRAZOLE) [Suspect]
     Indication: DRUG USE FOR UNKNOWN INDICATION
  6. SERTRALINE (SERTRALINE) (SERTRALINE) [Concomitant]

REACTIONS (9)
  - Hallucination, auditory [None]
  - Dizziness [None]
  - Nausea [None]
  - Hypersomnia [None]
  - Aggression [None]
  - Abnormal behaviour [None]
  - Anxiety [None]
  - Treatment noncompliance [None]
  - Thinking abnormal [None]
